FAERS Safety Report 8960441 (Version 1)
Quarter: 2012Q4

REPORT INFORMATION
  Report Type: Spontaneous
  Country: US (occurrence: None)
  Receive Date: 20121211
  Receipt Date: 20121211
  Transmission Date: 20130627
  Serious: Yes (Other)
  Sender: FDA-Public Use
  Company Number: None

PATIENT

DRUGS (1)
  1. ATORVASTATIN [Suspect]
     Indication: HIGH CHOLESTEROL
     Dates: start: 20131025

REACTIONS (4)
  - Abdominal pain [None]
  - Diarrhoea haemorrhagic [None]
  - Liver function test abnormal [None]
  - White blood cell count increased [None]
